FAERS Safety Report 4708525-6 (Version None)
Quarter: 2005Q3

REPORT INFORMATION
  Report Type: 
  Country: None (occurrence: None)
  Receive Date: 20050707
  Receipt Date: 20050707
  Transmission Date: 20060218
  Serious: Yes (Death, Hospitalization)
  Sender: FDA-Public Use
  Company Number: US-GLAXOSMITHKLINE-A0565212A

PATIENT
  Age: 68 Year
  Sex: Male
  Weight: 71 kg

DRUGS (1)
  1. MELPHALAN [Suspect]
     Indication: MULTIPLE MYELOMA
     Dosage: 374MG SINGLE DOSE
     Route: 042
     Dates: start: 20050424, end: 20050424

REACTIONS (8)
  - CLOSTRIDIUM COLITIS [None]
  - CYTOMEGALOVIRUS ANTIGEN POSITIVE [None]
  - DEATH [None]
  - ENTEROCOCCAL INFECTION [None]
  - FLUID OVERLOAD [None]
  - HAEMODIALYSIS [None]
  - PNEUMONIA [None]
  - REFUSAL OF TREATMENT BY PATIENT [None]
